FAERS Safety Report 4021992 (Version 5)
Quarter: 2020Q3

REPORT INFORMATION
  Report Type: Report from Study
  Country: US (occurrence: US)
  Receive Date: 20031016
  Receipt Date: 20050414
  Transmission Date: 20201105
  Serious: Yes (Other)
  Sender: FDA-Public Use
  Company Number: US-JNJFOC-20031002357

PATIENT
  Age: 24 Year
  Sex: Female

DRUGS (19)
  1. CISAPRIDE [Suspect]
     Active Substance: CISAPRIDE
     Indication: IMPAIRED GASTRIC EMPTYING
     Route: 049
     Dates: start: 200204
  2. CISAPRIDE [Suspect]
     Active Substance: CISAPRIDE
     Indication: GASTROOESOPHAGEAL REFLUX DISEASE
     Route: 049
     Dates: start: 200204
  3. RHINOCORT [Concomitant]
     Active Substance: BUDESONIDE
     Route: 045
  4. LIVOSTIN [Concomitant]
     Active Substance: LEVOCABASTINE HYDROCHLORIDE
     Indication: SEASONAL ALLERGY
     Route: 047
  5. UNSPECIFIED INGREDIENT [Concomitant]
     Active Substance: UNSPECIFIED INGREDIENT
  6. MORPHINE [Concomitant]
     Active Substance: MORPHINE
     Route: 042
     Dates: start: 20030905, end: 20030905
  7. CISAPRIDE [Suspect]
     Active Substance: CISAPRIDE
     Route: 049
     Dates: start: 200204
  8. PEPCID [Concomitant]
     Active Substance: FAMOTIDINE
     Indication: GASTROOESOPHAGEAL REFLUX DISEASE
     Route: 049
  9. GRANISETRON [Concomitant]
     Active Substance: GRANISETRON
     Indication: NAUSEA
  10. BACLOFEN. [Concomitant]
     Active Substance: BACLOFEN
     Indication: URINARY RETENTION
     Route: 049
  11. LODOXAMIDE TROMETHAMINE [Concomitant]
     Active Substance: LODOXAMIDE TROMETHAMINE
     Route: 031
  12. TOLTERODINE TARTRATE. [Concomitant]
     Active Substance: TOLTERODINE TARTRATE
     Indication: URINARY RETENTION
  13. ATROVENT [Concomitant]
     Active Substance: IPRATROPIUM BROMIDE
     Indication: ASTHMA
     Route: 055
  14. HYDROMORPHONE HYDROCHLORIDE. [Concomitant]
     Active Substance: HYDROMORPHONE HYDROCHLORIDE
     Indication: PAIN
     Dosage: PATIENT CONTROLLED ANALGESIA (PCAA) 1.0 MG/HR INTRAVENOUS AND CONTINUOUS
  15. VANCOMYCIN [Concomitant]
     Active Substance: VANCOMYCIN
  16. CITALOPRAM HYDROBROMIDE. [Concomitant]
     Active Substance: CITALOPRAM HYDROBROMIDE
     Indication: DEPRESSION
  17. LORAZEPAM. [Concomitant]
     Active Substance: LORAZEPAM
     Indication: NAUSEA
  18. AEROBID [Concomitant]
     Active Substance: FLUNISOLIDE
     Indication: ASTHMA
     Route: 055
  19. MORPHINE [Concomitant]
     Active Substance: MORPHINE
     Route: 042
     Dates: start: 20030905, end: 20030905

REACTIONS (7)
  - Electrocardiogram QT prolonged [Recovered/Resolved]
  - Electrocardiogram T wave abnormal [None]
  - Sinus tachycardia [None]
  - QRS axis abnormal [None]
  - Myocardial ischaemia [None]
  - Electrocardiogram QRS complex prolonged [None]
  - Dilatation atrial [None]

NARRATIVE: CASE EVENT DATE: 20030905
